FAERS Safety Report 22962829 (Version 2)
Quarter: 2023Q4

REPORT INFORMATION
  Report Type: Spontaneous
  Country: US (occurrence: US)
  Receive Date: 20230920
  Receipt Date: 20231005
  Transmission Date: 20240110
  Serious: No
  Sender: FDA-Public Use
  Company Number: US-Fresenius Medical Care Renal Therapies Group-FMC-2309-000970

PATIENT
  Age: 69 Year
  Sex: Male
  Weight: 77 kg

DRUGS (1)
  1. DELFLEX [Suspect]
     Active Substance: CALCIUM CHLORIDE\DEXTROSE\MAGNESIUM CHLORIDE\SODIUM CHLORIDE\SODIUM LACTATE
     Indication: End stage renal disease
     Dosage: 2300ML X 5 CYCLES OVER 9.5 HOURS NO LAST FILL, CURRENTLY ON HOLD
     Route: 033

REACTIONS (3)
  - Umbilical hernia [Unknown]
  - Discomfort [Unknown]
  - Inguinal hernia [Unknown]
